FAERS Safety Report 10072475 (Version 2)
Quarter: 2014Q2

REPORT INFORMATION
  Report Type: Spontaneous
  Country: US (occurrence: None)
  Receive Date: 20140409
  Receipt Date: 20140414
  Transmission Date: 20141212
  Serious: Yes (Hospitalization, Other)
  Sender: FDA-Public Use
  Company Number: 20140167

PATIENT
  Age: 50 Year
  Sex: Male

DRUGS (1)
  1. PHENYTOIN SODIUM [Suspect]
     Indication: CONVULSION
     Dosage: DOSE UNKNOWN UNKNOWN UNK /  UNK THERAPY DATES

REACTIONS (9)
  - Urticaria [None]
  - Rash maculo-papular [None]
  - Pyrexia [None]
  - Vasculitis [None]
  - Drug reaction with eosinophilia and systemic symptoms [None]
  - Aphasia [None]
  - Anaemia [None]
  - Renal impairment [None]
  - Thrombotic thrombocytopenic purpura [None]
